FAERS Safety Report 5334403-8 (Version None)
Quarter: 2007Q2

REPORT INFORMATION
  Report Type: 
  Country: None (occurrence: None)
  Receive Date: 20070522
  Receipt Date: 20070517
  Transmission Date: 20071010
  Serious: Yes (Other)
  Sender: FDA-Public Use
  Company Number: 156440USA

PATIENT
  Age: 60 Year
  Sex: Female

DRUGS (4)
  1. GABAPENTIN [Suspect]
     Dosage: (300 MG), ORAL
     Route: 048
     Dates: start: 20070516, end: 20070516
  2. ALPRAZOLAM [Concomitant]
  3. ZOLPIDEM TARTRATE [Concomitant]
  4. MAXZIDE [Concomitant]

REACTIONS (6)
  - ANAPHYLACTIC SHOCK [None]
  - HYPERSENSITIVITY [None]
  - MUSCLE SPASMS [None]
  - MYALGIA [None]
  - OEDEMA MOUTH [None]
  - SWOLLEN TONGUE [None]
